FAERS Safety Report 8666447 (Version 2)
Quarter: 2012Q4

REPORT INFORMATION
  Report Type: 
  Country: JP (occurrence: JP)
  Receive Date: 20120716
  Receipt Date: 20120830
  Transmission Date: 20130627
  Serious: Yes (Hospitalization)
  Sender: FDA-Public Use
  Company Number: JP-GLAXOSMITHKLINE-B0804425A

PATIENT
  Age: 31 None
  Sex: Female

DRUGS (13)
  1. LAMICTAL [Suspect]
     Indication: EPILEPSY
     Dosage: 50MG Per day
     Route: 048
     Dates: start: 20100410, end: 201004
  2. LAMICTAL [Suspect]
     Indication: EPILEPSY
     Dosage: 250MG Per day
     Route: 048
     Dates: start: 201004
  3. LAMICTAL [Suspect]
     Indication: EPILEPSY
     Dosage: 275MG Per day
     Route: 048
     Dates: start: 20120124, end: 20120423
  4. LAMICTAL [Suspect]
     Indication: EPILEPSY
     Dosage: 300MG Per day
     Route: 048
     Dates: start: 20120424, end: 20120517
  5. LAMICTAL [Suspect]
     Indication: EPILEPSY
     Dosage: 375MG Per day
     Route: 048
     Dates: start: 20120518, end: 20120528
  6. LAMICTAL [Suspect]
     Indication: EPILEPSY
     Dosage: 400MG Per day
     Route: 048
     Dates: start: 20120529, end: 20120613
  7. LAMICTAL [Suspect]
     Indication: EPILEPSY
     Dosage: 425MG Per day
     Route: 048
     Dates: start: 20120614, end: 20120712
  8. LAMICTAL [Suspect]
     Indication: EPILEPSY
     Dosage: 475MG Per day
     Route: 048
     Dates: start: 20120713, end: 20120717
  9. LAMICTAL [Suspect]
     Indication: EPILEPSY
     Dosage: 700MG Per day
     Route: 048
     Dates: start: 20120718, end: 20120722
  10. LAMICTAL [Suspect]
     Indication: EPILEPSY
     Dosage: 400MG Per day
     Route: 048
     Dates: start: 20120723, end: 20120724
  11. LAMICTAL [Suspect]
     Indication: EPILEPSY
     Dosage: 350MG Per day
     Route: 048
     Dates: start: 20120725
  12. TEGRETOL [Concomitant]
     Indication: EPILEPSY
     Route: 048
     Dates: start: 201101, end: 201205
  13. EXCEGRAN [Concomitant]
     Indication: EPILEPSY
     Dosage: 400MG Per day
     Route: 048

REACTIONS (7)
  - Epilepsy [Recovered/Resolved]
  - Partial seizures [Unknown]
  - Partial seizures with secondary generalisation [Unknown]
  - Drug level decreased [Unknown]
  - Drug clearance increased [Unknown]
  - Exposure during pregnancy [Unknown]
  - Live birth [Unknown]
